FAERS Safety Report 8894141 (Version 1)
Quarter: 2012Q4

REPORT INFORMATION
  Report Type: 
  Country: SE (occurrence: SE)
  Receive Date: 20121108
  Receipt Date: 20121108
  Transmission Date: 20130627
  Serious: Yes (Hospitalization)
  Sender: FDA-Public Use
  Company Number: SE-PFIZER INC-2012276889

PATIENT
  Age: 59 Year
  Sex: Female

DRUGS (2)
  1. XANOR [Suspect]
     Dosage: UNK
  2. PROPAVAN [Suspect]
     Dosage: 25 mg, unknown total dose

REACTIONS (2)
  - Toxicity to various agents [Recovered/Resolved]
  - Loss of consciousness [Recovered/Resolved]
